FAERS Safety Report 8143783 (Version 2)
Quarter: 2012Q4

REPORT INFORMATION
  Report Type: 
  Country: BR (occurrence: BR)
  Receive Date: 20110920
  Receipt Date: 20121108
  Transmission Date: 20130627
  Serious: No
  Sender: FDA-Public Use
  Company Number: PHHY2011BR82451

PATIENT
  Sex: Female
  Weight: 84 kg

DRUGS (1)
  1. TASIGNA [Suspect]
     Indication: CHRONIC MYELOID LEUKAEMIA
     Dosage: 800 mg daily
     Dates: start: 20080728, end: 20110703

REACTIONS (1)
  - Exposure during pregnancy [Unknown]
